FAERS Safety Report 9924814 (Version 1)
Quarter: 2014Q1

REPORT INFORMATION
  Report Type: Spontaneous
  Country: US (occurrence: None)
  Receive Date: 20140221
  Receipt Date: 20140221
  Transmission Date: 20141002
  Serious: Yes (Hospitalization, Other)
  Sender: FDA-Public Use
  Company Number: DSU-2014-00041

PATIENT
  Sex: Male

DRUGS (18)
  1. BENICAR (OLMESARTAN MEDOXOMIL) (40 MILLIGRAM, TABLET) (OLMESARTAN MEDOXOMIL) [Suspect]
     Indication: PRODUCT USED FOR UNKNOWN INDICATION
     Dosage: 80 MG (40 MG,BID)
     Route: 048
  2. SUNITINIB [Suspect]
     Indication: PRODUCT USED FOR UNKNOWN INDICATION
     Route: 048
     Dates: start: 20130927, end: 20131118
  3. LIPITOR (ATORVASTATIN CALCIUM) (ATORVASTATIN CALCIUM) [Concomitant]
  4. CARVEDILOL (CARVEDILOL) (CARVEDILOL) [Concomitant]
  5. VITAMIN B COMPLEX (PYRIDOXINE HYDROCHLORIDE, RIBOFLAVIN, NICOTINAMIDE, CALCIUM PANTOTHENATE, THIAMINE MONONITRATE) (1 DOSAGE FORMS, TABLET) (PYRIDOXINE HYDROCHLORIDE, RIBOFLAVIN, NICOTINAMIDE, CALCIUM PANTOTHENATE, THIAMINE MONONITRATE)? [Concomitant]
  6. EFEXOR (VENLAFAXINE) (VENLAFAXINE) [Concomitant]
  7. NIFEDIPINE ER (NIFEDIPINE) (NIFEDIPINE) [Concomitant]
  8. DASATINIB (DASATINIB) (DASATINIB) [Concomitant]
  9. ABIRATERONE ACETATE (ABIRATERONE ACETATE) (ABIRATERONE ACETATE) [Concomitant]
  10. ASPIRIN (ACETYLSALICYLIC ACID) (ACETYLSALICYLIC ACID) [Concomitant]
  11. FISH OIL (FISH OIL) (FISH OIL) [Concomitant]
  12. LUPRON (LEUPRORELIN ACETATE) (LEUPRORELIN ACETATE) [Concomitant]
  13. PLAVIX (CLOPIDOGREL) (CLOPIDOGREL) [Concomitant]
  14. PROVIGIL (MODAFINIL) (MODAFINIL) [Concomitant]
  15. VITAMIN C (CALCIUM ASCORBATE) (CALCIUM ASCORBATE) [Concomitant]
  16. PREDNISONE (PREDNISONE) (PREDNISONE) [Concomitant]
  17. NUTRISOL [INGREDIENTS UNKNOWN] [Concomitant]
  18. VITAMIN D (ERGOCALCIFEROL) (400 IU (INTERNATIONAL UNIT)) (ERGOCALCIFEROL) [Concomitant]

REACTIONS (3)
  - Vomiting [None]
  - Mallory-Weiss syndrome [None]
  - Nausea [None]
